FAERS Safety Report 10949073 (Version 1)
Quarter: 2015Q1

REPORT INFORMATION
  Report Type: Spontaneous
  Country: DE (occurrence: None)
  Receive Date: 20150320
  Receipt Date: 20150320
  Transmission Date: 20150721
  Serious: Yes (Other)
  Sender: FDA-Public Use
  Company Number: 2015-10708

PATIENT
  Age: 94 Year
  Sex: Female

DRUGS (3)
  1. EYLEA [Suspect]
     Active Substance: AFLIBERCEPT
     Indication: PRODUCT USED FOR UNKNOWN INDICATION
     Route: 031
     Dates: start: 2013
  2. AVASTIN [Concomitant]
     Active Substance: BEVACIZUMAB
  3. LUCENTIS (RANIBIZUMAB) [Concomitant]

REACTIONS (3)
  - Staphylococcus test positive [None]
  - Endophthalmitis [None]
  - Necrotising retinitis [None]

NARRATIVE: CASE EVENT DATE: 201501
